FAERS Safety Report 9158252 (Version 1)
Quarter: 2013Q1

REPORT INFORMATION
  Report Type: Spontaneous
  Country: CN (occurrence: CN)
  Receive Date: 20130312
  Receipt Date: 20130312
  Transmission Date: 20140127
  Serious: Yes (Death)
  Sender: FDA-Public Use
  Company Number: CN-BAYER-2013-028944

PATIENT
  Sex: 0

DRUGS (1)
  1. CANESTEN (KAINITING) [Suspect]
     Dosage: UNK
     Route: 064
     Dates: start: 20130217

REACTIONS (3)
  - Premature baby [None]
  - Foetal exposure during pregnancy [None]
  - Premature baby [Fatal]
